FAERS Safety Report 7334326-9 (Version None)
Quarter: 2011Q1

REPORT INFORMATION
  Report Type: 
  Country: None (occurrence: None)
  Receive Date: 20110307
  Receipt Date: 20110125
  Transmission Date: 20110831
  Serious: Yes (Death)
  Sender: FDA-Public Use
  Company Number: US-TYCO HEALTHCARE/MALLINCKRODT-T201100445

PATIENT
  Age: 82 Year
  Sex: Female

DRUGS (5)
  1. HYDROCODONE/ACETAMINOPHEN [Suspect]
     Route: 048
  2. LITHIUM [Suspect]
     Route: 048
  3. PROPRANOLOL [Suspect]
     Route: 048
  4. CLOZAPINE [Suspect]
     Route: 048
  5. DOCUSATE [Suspect]
     Route: 048

REACTIONS (1)
  - MEDICATION ERROR [None]
